FAERS Safety Report 12971453 (Version 1)
Quarter: 2016Q4

REPORT INFORMATION
  Report Type: Spontaneous
  Country: US (occurrence: US)
  Receive Date: 20161123
  Receipt Date: 20161123
  Transmission Date: 20170207
  Serious: No
  Sender: FDA-Public Use
  Company Number: US-JAZZ-2016-US-020101

PATIENT
  Age: 81 Year
  Sex: Male

DRUGS (31)
  1. AMLODIPINE BESYLATE. [Concomitant]
     Active Substance: AMLODIPINE BESYLATE
  2. PROVIGIL [Concomitant]
     Active Substance: MODAFINIL
  3. ASPIRIN                            /00002701/ [Concomitant]
     Active Substance: ASPIRIN
  4. XYREM [Suspect]
     Active Substance: SODIUM OXYBATE
     Dosage: 2.25 G, BID
     Route: 048
     Dates: start: 201511, end: 201512
  5. COUMADIN [Concomitant]
     Active Substance: WARFARIN SODIUM
  6. ATORVASTATIN [Concomitant]
     Active Substance: ATORVASTATIN
  7. XYREM [Suspect]
     Active Substance: SODIUM OXYBATE
     Indication: NARCOLEPSY
     Dosage: 2.25 G, BID
     Route: 048
     Dates: start: 201504, end: 2015
  8. ISOSORBIDE MN ER [Concomitant]
     Active Substance: ISOSORBIDE
  9. CENTRUM SILVER                     /02363801/ [Concomitant]
     Active Substance: MINERALS\VITAMINS
  10. ASPIRIN (E.C.) [Concomitant]
     Active Substance: ASPIRIN
  11. MOTRIN IB [Concomitant]
     Active Substance: IBUPROFEN
  12. VITAMIN B12 [Concomitant]
     Active Substance: CYANOCOBALAMIN
  13. VITAMIN D3 [Concomitant]
     Active Substance: CHOLECALCIFEROL
  14. XYREM [Suspect]
     Active Substance: SODIUM OXYBATE
     Dosage: 2.25 G, BID
     Route: 048
     Dates: start: 201606
  15. TRELSTAR [Concomitant]
     Active Substance: TRIPTORELIN PAMOATE
  16. MYRBETRIQ ER [Concomitant]
  17. FISH OIL EC [Concomitant]
  18. FIRMAGON [Concomitant]
     Active Substance: DEGARELIX ACETATE
  19. VIAGRA [Concomitant]
     Active Substance: SILDENAFIL CITRATE
  20. NITROGLYCERIN. [Concomitant]
     Active Substance: NITROGLYCERIN
  21. XYREM [Suspect]
     Active Substance: SODIUM OXYBATE
     Dosage: DOSE ADJUSTMENTS
     Route: 048
     Dates: start: 201512, end: 201606
  22. PROSTEON [Concomitant]
     Active Substance: MINERALS
  23. METOPROLOL SUCCINATE ER [Concomitant]
     Active Substance: METOPROLOL SUCCINATE
  24. BENTYL [Concomitant]
     Active Substance: DICYCLOMINE HYDROCHLORIDE
  25. AMOXICILLIN. [Concomitant]
     Active Substance: AMOXICILLIN
  26. DETROL LA [Concomitant]
     Active Substance: TOLTERODINE TARTRATE
  27. MIRALAX [Concomitant]
     Active Substance: POLYETHYLENE GLYCOL 3350
  28. TYLENOL ARTHRITIS PAIN [Concomitant]
     Active Substance: ACETAMINOPHEN
  29. FLONASE                            /00908302/ [Concomitant]
     Active Substance: MOMETASONE FUROATE
  30. PRAMIPEXOLE. [Concomitant]
     Active Substance: PRAMIPEXOLE
  31. RAMIPRIL. [Concomitant]
     Active Substance: RAMIPRIL

REACTIONS (1)
  - Dental implantation [Unknown]

NARRATIVE: CASE EVENT DATE: 20160929
